FAERS Safety Report 6055273-9 (Version None)
Quarter: 2009Q1

REPORT INFORMATION
  Report Type: 
  Country: None (occurrence: None)
  Receive Date: 20090123
  Receipt Date: 20090112
  Transmission Date: 20090719
  Serious: Yes (Other)
  Sender: FDA-Public Use
  Company Number: 2009-189462-NL

PATIENT
  Age: 22 Year
  Sex: Female

DRUGS (1)
  1. REMERON SOLTAB [Suspect]
     Dates: start: 19990101

REACTIONS (3)
  - ANXIETY [None]
  - AURA [None]
  - COLITIS ULCERATIVE [None]
